FAERS Safety Report 10285618 (Version 1)
Quarter: 2014Q3

REPORT INFORMATION
  Report Type: Spontaneous
  Country: US (occurrence: US)
  Receive Date: 20140709
  Receipt Date: 20140709
  Transmission Date: 20150326
  Serious: No
  Sender: FDA-Public Use
  Company Number: US-BIOGENIDEC-2014BI064766

PATIENT
  Sex: Male

DRUGS (2)
  1. AVONEX [Concomitant]
     Active Substance: INTERFERON BETA-1A
     Indication: MULTIPLE SCLEROSIS
     Route: 030
  2. TYSABRI [Suspect]
     Active Substance: NATALIZUMAB
     Indication: MULTIPLE SCLEROSIS
     Route: 042
     Dates: start: 20120808

REACTIONS (6)
  - White blood cell count abnormal [Not Recovered/Not Resolved]
  - Dysgraphia [Recovered/Resolved]
  - Adverse drug reaction [Recovered/Resolved]
  - Malaise [Recovered/Resolved]
  - Insomnia [Recovered/Resolved]
  - Urine flow decreased [Unknown]

NARRATIVE: CASE EVENT DATE: 2012
